FAERS Safety Report 9166449 (Version 3)
Quarter: 2014Q1

REPORT INFORMATION
  Report Type: Spontaneous
  Country: US (occurrence: US)
  Receive Date: 20130315
  Receipt Date: 20140303
  Transmission Date: 20141002
  Serious: Yes (Hospitalization, Other)
  Sender: FDA-Public Use
  Company Number: US-009507513-1303USA007494

PATIENT
  Sex: Female
  Weight: 70.3 kg

DRUGS (4)
  1. FOSAMAX [Suspect]
     Indication: OSTEOPOROSIS
     Dosage: 70 MG, QW
     Route: 048
     Dates: start: 201102
  2. FOSAMAX [Suspect]
     Dosage: 35 MG, UNK
     Route: 048
     Dates: start: 20110216, end: 20120718
  3. ALENDRONATE SODIUM [Suspect]
     Indication: OSTEOPOROSIS
     Dosage: 30-35 MG, QW
     Route: 048
     Dates: start: 20110216, end: 20110831
  4. ALENDRONATE SODIUM [Suspect]
     Dosage: 70 MG, QW
     Route: 048
     Dates: start: 20100728, end: 201207

REACTIONS (17)
  - Femur fracture [Recovered/Resolved]
  - Knee arthroplasty [Unknown]
  - Hip arthroplasty [Unknown]
  - Low turnover osteopathy [Unknown]
  - Fall [Unknown]
  - Wound [Recovered/Resolved]
  - Closed fracture manipulation [Unknown]
  - Haemorrhagic disorder [Unknown]
  - Cardiac disorder [Unknown]
  - Bursitis [Unknown]
  - Cough [Unknown]
  - Dyspnoea [Unknown]
  - Faecal incontinence [Unknown]
  - Dizziness [Unknown]
  - Arthralgia [Unknown]
  - Nausea [Unknown]
  - Headache [Unknown]
